FAERS Safety Report 14095484 (Version 2)
Quarter: 2017Q4

REPORT INFORMATION
  Report Type: Report from Study
  Country: US (occurrence: BR)
  Receive Date: 20171016
  Receipt Date: 20171030
  Transmission Date: 20180321
  Serious: Yes (Other)
  Sender: FDA-Public Use
  Company Number: US-SUNOVION-2017SUN004449

PATIENT
  Sex: Male
  Weight: 66 kg

DRUGS (9)
  1. PREDSIM [Concomitant]
     Active Substance: PREDNISOLONE
  2. GLYCOPYRROLATE. [Suspect]
     Active Substance: GLYCOPYRROLATE
     Dosage: UNK
     Route: 055
     Dates: start: 20170509, end: 20170919
  3. AIRES [Concomitant]
     Active Substance: ACETYLCYSTEINE
  4. INDACATEROL AND GLYCOPYRROLATE [Suspect]
     Active Substance: GLYCOPYRROLATE\INDACATEROL MALEATE
     Indication: PULMONARY NECROSIS
     Dosage: 1 DF (110/50 UG) QD
     Route: 055
     Dates: start: 20170204
  5. INDACATEROL AND GLYCOPYRROLATE [Suspect]
     Active Substance: GLYCOPYRROLATE\INDACATEROL MALEATE
     Dosage: 1 DF, QD
     Route: 055
     Dates: start: 201705
  6. GLYCOPYRROLATE. [Suspect]
     Active Substance: GLYCOPYRROLATE
     Indication: LUNG DISORDER
     Dosage: 1 UNK, UNK
     Route: 055
     Dates: start: 201702, end: 201705
  7. INDACATEROL [Suspect]
     Active Substance: INDACATEROL
     Indication: LUNG DISORDER
     Dosage: 1 DF, QD
     Dates: end: 201702
  8. RINOSORO [Concomitant]
  9. INDACATEROL AND GLYCOPYRROLATE [Suspect]
     Active Substance: GLYCOPYRROLATE\INDACATEROL MALEATE
     Indication: LUNG DISORDER
     Dosage: UNK
     Route: 055
     Dates: start: 20170926

REACTIONS (5)
  - Drug ineffective [Unknown]
  - Cardiac disorder [Unknown]
  - Chronic kidney disease [Unknown]
  - Productive cough [Recovering/Resolving]
  - Product use in unapproved indication [Unknown]
